FAERS Safety Report 9335021 (Version 2)
Quarter: 2013Q3

REPORT INFORMATION
  Report Type: Spontaneous
  Country: MX (occurrence: MX)
  Receive Date: 20130606
  Receipt Date: 20130816
  Transmission Date: 20140515
  Serious: Yes (Other)
  Sender: FDA-Public Use
  Company Number: MX-ELI_LILLY_AND_COMPANY-MX201306000292

PATIENT
  Sex: 0

DRUGS (4)
  1. HUMULIN NPH [Suspect]
     Indication: GESTATIONAL DIABETES
     Dosage: 14 IU, EACH EVENING
     Route: 064
     Dates: end: 20130115
  2. HUMULIN NPH [Suspect]
     Indication: GESTATIONAL DIABETES
     Dosage: 14 IU, EACH EVENING
     Route: 064
     Dates: end: 20130115
  3. METFORMIN [Concomitant]
     Dosage: UNK
     Route: 064
     Dates: end: 20130115
  4. METFORMIN [Concomitant]
     Dosage: UNK
     Route: 064
     Dates: end: 20130115

REACTIONS (2)
  - Foetal malposition [Recovered/Resolved]
  - Foetal exposure during pregnancy [Recovered/Resolved]
